FAERS Safety Report 8835127 (Version 4)
Quarter: 2016Q2

REPORT INFORMATION
  Report Type: Report from Study
  Country: CA (occurrence: CA)
  Receive Date: 20121011
  Receipt Date: 20160527
  Transmission Date: 20160815
  Serious: Yes (Other)
  Sender: FDA-Public Use
  Company Number: CA-ROCHE-775831

PATIENT
  Age: 47 Year
  Sex: Male
  Weight: 55 kg

DRUGS (14)
  1. OXYCONTIN [Concomitant]
     Active Substance: OXYCODONE HYDROCHLORIDE
  2. METHOTREXATE [Concomitant]
     Active Substance: METHOTREXATE
  3. ACTEMRA [Suspect]
     Active Substance: TOCILIZUMAB
     Route: 042
  4. ACTONEL [Concomitant]
     Active Substance: RISEDRONATE SODIUM
  5. ALLOPURINOL. [Concomitant]
     Active Substance: ALLOPURINOL
  6. ACTEMRA [Suspect]
     Active Substance: TOCILIZUMAB
     Route: 042
  7. OMEPRAZOLE. [Concomitant]
     Active Substance: OMEPRAZOLE
  8. COUMADIN [Concomitant]
     Active Substance: WARFARIN SODIUM
  9. ACTEMRA [Suspect]
     Active Substance: TOCILIZUMAB
     Indication: RHEUMATOID ARTHRITIS
     Route: 042
  10. ACTEMRA [Suspect]
     Active Substance: TOCILIZUMAB
     Route: 042
  11. FOLIC ACID. [Concomitant]
     Active Substance: FOLIC ACID
  12. PREDNISONE. [Concomitant]
     Active Substance: PREDNISONE
  13. ACTEMRA [Suspect]
     Active Substance: TOCILIZUMAB
     Route: 042
  14. ALTACE [Concomitant]
     Active Substance: RAMIPRIL

REACTIONS (11)
  - Malaise [Unknown]
  - Sluggishness [Unknown]
  - Pneumonia [Not Recovered/Not Resolved]
  - Nasopharyngitis [Unknown]
  - Weight increased [Unknown]
  - Weight decreased [Unknown]
  - Pharyngitis streptococcal [Recovered/Resolved]
  - Hypotension [Unknown]
  - Flushing [Unknown]
  - Inguinal hernia [Recovering/Resolving]
  - Migraine [Unknown]

NARRATIVE: CASE EVENT DATE: 201101
